FAERS Safety Report 13339059 (Version 1)
Quarter: 2017Q1

REPORT INFORMATION
  Report Type: Spontaneous
  Country: FR (occurrence: FR)
  Receive Date: 20170315
  Receipt Date: 20170315
  Transmission Date: 20170509
  Serious: Yes (Other)
  Sender: FDA-Public Use
  Company Number: FR-ASTRAZENECA-2017SE26635

PATIENT
  Age: 28370 Day
  Sex: Male

DRUGS (2)
  1. PREVISCAN [Interacting]
     Active Substance: FLUINDIONE
     Route: 065
     Dates: end: 20170307
  2. TAGRISSO [Suspect]
     Active Substance: OSIMERTINIB
     Indication: LUNG NEOPLASM MALIGNANT
     Route: 048
     Dates: end: 20170307

REACTIONS (3)
  - International normalised ratio increased [Not Recovered/Not Resolved]
  - Drug interaction [Unknown]
  - Intentional product use issue [Recovered/Resolved]

NARRATIVE: CASE EVENT DATE: 20170306
